FAERS Safety Report 7274085-1 (Version None)
Quarter: 2011Q1

REPORT INFORMATION
  Report Type: 
  Country: None (occurrence: None)
  Receive Date: 20110204
  Receipt Date: 20110128
  Transmission Date: 20110831
  Serious: Yes (Hospitalization)
  Sender: FDA-Public Use
  Company Number: US-BIOGENIDEC-2010BI035871

PATIENT
  Age: 31 Year
  Sex: Female
  Weight: 100 kg

DRUGS (6)
  1. KLONOPIN [Concomitant]
     Indication: INSOMNIA
     Route: 048
     Dates: start: 20080117
  2. SOMA [Concomitant]
     Indication: INSOMNIA
     Route: 048
     Dates: start: 20080113
  3. NUVIGIL [Concomitant]
     Indication: FATIGUE
     Route: 048
     Dates: start: 20091109
  4. TYSABRI [Suspect]
     Indication: MULTIPLE SCLEROSIS
     Route: 042
     Dates: start: 20080117
  5. VICODIN ES [Concomitant]
     Indication: PAIN
     Route: 048
     Dates: start: 20080313
  6. VICODIN ES [Concomitant]
     Route: 048
     Dates: start: 20080313

REACTIONS (1)
  - OTITIS EXTERNA [None]
